FAERS Safety Report 18798226 (Version 7)
Quarter: 2021Q2

REPORT INFORMATION
  Report Type: Report from Study
  Country: CA (occurrence: CA)
  Receive Date: 20210128
  Receipt Date: 20210504
  Transmission Date: 20210717
  Serious: Yes (Hospitalization)
  Sender: FDA-Public Use
  Company Number: CA-JNJFOC-20210119640

PATIENT
  Age: 53 Year
  Sex: Female
  Weight: 120 kg

DRUGS (2)
  1. REMICADE [Suspect]
     Active Substance: INFLIXIMAB
     Indication: CROHN^S DISEASE
     Dosage: 10 MG/KG
     Route: 042
     Dates: start: 20100412
  2. REMICADE [Suspect]
     Active Substance: INFLIXIMAB
     Dosage: LAST INFUSION 24?NOV?2020.
     Route: 042

REACTIONS (17)
  - Stasis dermatitis [Not Recovered/Not Resolved]
  - Haemothorax [Recovered/Resolved]
  - Fall [Unknown]
  - Inappropriate schedule of product administration [Unknown]
  - Vulval oedema [Recovered/Resolved]
  - Vulvovaginal erythema [Recovered/Resolved]
  - Peripheral swelling [Recovered/Resolved]
  - COVID-19 [Recovered/Resolved]
  - Lip oedema [Recovered/Resolved]
  - Peripheral venous disease [Not Recovered/Not Resolved]
  - Urinary tract infection [Recovered/Resolved]
  - Pleural effusion [Recovered/Resolved]
  - Lip erythema [Recovered/Resolved]
  - Fatigue [Recovered/Resolved]
  - Pneumothorax [Recovered/Resolved]
  - Ulcer [Recovered/Resolved]
  - Diarrhoea [Recovered/Resolved]

NARRATIVE: CASE EVENT DATE: 202101
